FAERS Safety Report 21362247 (Version 3)
Quarter: 2023Q4

REPORT INFORMATION
  Report Type: Report from Study
  Country: CO (occurrence: CO)
  Receive Date: 20220922
  Receipt Date: 20231130
  Transmission Date: 20240110
  Serious: Yes (Other)
  Sender: FDA-Public Use
  Company Number: CO-JNJFOC-20220929015

PATIENT
  Age: 43 Year
  Sex: Male
  Weight: 56 kg

DRUGS (4)
  1. RISPERDAL CONSTA [Suspect]
     Active Substance: RISPERIDONE
     Indication: Schizophrenia
     Dosage: THE LAST DRUG APPLICATION WAS ON 07-JUL-2023.? LAST DRUG APPLICATION: 20-NOV-2023
     Route: 030
     Dates: start: 20171221
  2. RISPERDAL CONSTA [Suspect]
     Active Substance: RISPERIDONE
  3. RISPERDAL CONSTA [Suspect]
     Active Substance: RISPERIDONE
  4. RISPERDAL CONSTA [Suspect]
     Active Substance: RISPERIDONE

REACTIONS (8)
  - Abnormal behaviour [Not Recovered/Not Resolved]
  - Logorrhoea [Not Recovered/Not Resolved]
  - Adverse event [Not Recovered/Not Resolved]
  - Depression [Not Recovered/Not Resolved]
  - Incoherent [Not Recovered/Not Resolved]
  - Anaemia [Not Recovered/Not Resolved]
  - Discouragement [Not Recovered/Not Resolved]
  - Blood glucose [Not Recovered/Not Resolved]

NARRATIVE: CASE EVENT DATE: 20220912
